FAERS Safety Report 8584614-3 (Version None)
Quarter: 2012Q3

REPORT INFORMATION
  Report Type: 
  Country: None (occurrence: None)
  Receive Date: 20120810
  Receipt Date: 20120731
  Transmission Date: 20120928
  Serious: Yes (Hospitalization)
  Sender: FDA-Public Use
  Company Number: US-BAYER-2010-002554

PATIENT
  Age: 22 Year
  Sex: Female
  Weight: 83.9 kg

DRUGS (4)
  1. YAZ [Suspect]
     Indication: PRODUCT USED FOR UNKNOWN INDICATION
     Dosage: UNK
     Dates: start: 20070501, end: 20070801
  2. ANTIBIOTICS [Concomitant]
     Indication: CELLULITIS
     Dosage: UNK
     Route: 042
  3. ADVIL [Concomitant]
     Indication: HEADACHE
     Dosage: 1-2 TABLETS, AS NEEDED
  4. ADVIL [Concomitant]
     Indication: BACK PAIN

REACTIONS (1)
  - DEEP VEIN THROMBOSIS [None]
